FAERS Safety Report 7927231-8 (Version None)
Quarter: 2011Q4

REPORT INFORMATION
  Report Type: 
  Country: None (occurrence: None)
  Receive Date: 20111116
  Receipt Date: 20111101
  Transmission Date: 20120403
  Serious: Yes (Hospitalization)
  Sender: FDA-Public Use
  Company Number: DEP_00522_2011

PATIENT
  Age: 47 Year
  Sex: Male

DRUGS (1)
  1. METFORMIN HCL [Suspect]
     Indication: TYPE 2 DIABETES MELLITUS
     Dosage: DF, DAILY

REACTIONS (19)
  - DIARRHOEA [None]
  - BUNDLE BRANCH BLOCK RIGHT [None]
  - NO THERAPEUTIC RESPONSE [None]
  - DEPRESSION [None]
  - VOMITING [None]
  - ECONOMIC PROBLEM [None]
  - BLOOD CREATININE INCREASED [None]
  - HYPOGLYCAEMIA [None]
  - AGITATION [None]
  - HYPERVENTILATION [None]
  - SINUS TACHYCARDIA [None]
  - BLOOD UREA INCREASED [None]
  - BLOOD PRESSURE DECREASED [None]
  - DIALYSIS [None]
  - TOXICITY TO VARIOUS AGENTS [None]
  - DEHYDRATION [None]
  - METABOLIC ACIDOSIS [None]
  - RENAL FAILURE ACUTE [None]
  - BRADYCARDIA [None]
